FAERS Safety Report 9417422 (Version 1)
Quarter: 2013Q3

REPORT INFORMATION
  Report Type: Spontaneous
  Country: GB (occurrence: GB)
  Receive Date: 20130724
  Receipt Date: 20130724
  Transmission Date: 20140515
  Serious: Yes (Other)
  Sender: FDA-Public Use
  Company Number: GB-PFIZER INC-2012198534

PATIENT
  Age: 52 Year
  Sex: Male
  Weight: 84 kg

DRUGS (4)
  1. VIAGRA [Suspect]
     Indication: ERECTILE DYSFUNCTION
     Dosage: 25 MG, 2X/WEEK
  2. VIAGRA [Suspect]
     Dosage: 100 MG, 1-2 WEEKLY
     Route: 048
     Dates: start: 20050331
  3. VIAGRA [Suspect]
     Dosage: 100 MG, ALMOST DAILY
  4. SIMVASTATIN [Concomitant]
     Indication: HYPERLIPIDAEMIA
     Dosage: 40 MG, 1X/DAY
     Route: 048
     Dates: start: 20110819

REACTIONS (4)
  - Extra dose administered [Not Recovered/Not Resolved]
  - Erectile dysfunction [Not Recovered/Not Resolved]
  - Libido decreased [Not Recovered/Not Resolved]
  - Drug ineffective [Not Recovered/Not Resolved]
